FAERS Safety Report 12737333 (Version 1)
Quarter: 2016Q3

REPORT INFORMATION
  Report Type: Spontaneous
  Country: CA (occurrence: CA)
  Receive Date: 20160913
  Receipt Date: 20160913
  Transmission Date: 20161109
  Serious: Yes (Other)
  Sender: FDA-Public Use
  Company Number: CA-ORION CORPORATION ORION PHARMA-TREX2016-1337

PATIENT
  Age: 64 Year
  Sex: Female

DRUGS (3)
  1. TOFACITINIB [Suspect]
     Active Substance: TOFACITINIB
     Route: 048
     Dates: start: 20160822
  2. METHOTREXATE (TRADE NAME UNKNOWN) [Suspect]
     Active Substance: METHOTREXATE
     Route: 065
  3. TOFACITINIB [Suspect]
     Active Substance: TOFACITINIB
     Indication: RHEUMATOID ARTHRITIS
     Route: 048
     Dates: start: 20141108, end: 2016

REACTIONS (4)
  - Paraesthesia [Recovered/Resolved]
  - Pain [Unknown]
  - Rheumatoid arthritis [Recovering/Resolving]
  - Hypoaesthesia [Recovered/Resolved]
